FAERS Safety Report 5096118-3 (Version None)
Quarter: 2006Q3

REPORT INFORMATION
  Report Type: 
  Country: None (occurrence: None)
  Receive Date: 20060731
  Receipt Date: 20060428
  Transmission Date: 20061208
  Serious: No
  Sender: FDA-Public Use
  Company Number: 2006PV012906

PATIENT
  Age: 71 Year
  Sex: Female
  Weight: 95.2554 kg

DRUGS (4)
  1. BYETTA [Suspect]
     Indication: DIABETES MELLITUS NON-INSULIN-DEPENDENT
     Dosage: 5 MCG; BID; SC
     Route: 058
     Dates: start: 20060422
  2. HUMALOG [Concomitant]
  3. HUMULIN [Concomitant]
  4. COUMADIN [Concomitant]

REACTIONS (2)
  - FAECES DISCOLOURED [None]
  - NAUSEA [None]
